FAERS Safety Report 7411175-4 (Version None)
Quarter: 2011Q2

REPORT INFORMATION
  Report Type: 
  Country: None (occurrence: None)
  Receive Date: 20110413
  Receipt Date: 20100511
  Transmission Date: 20111010
  Serious: Yes (Hospitalization, Other)
  Sender: FDA-Public Use
  Company Number: US-BRISTOL-MYERS SQUIBB COMPANY-15039589

PATIENT
  Age: 64 Year
  Sex: Male

DRUGS (3)
  1. TAXOTERE [Suspect]
     Indication: NON-SMALL CELL LUNG CANCER
     Dosage: ROA:IVBP
     Route: 042
     Dates: start: 20091215
  2. ERBITUX [Suspect]
     Indication: NON-SMALL CELL LUNG CANCER
     Dosage: 250 MG/M2 ROUTE:IVPB
     Route: 042
     Dates: start: 20091215
  3. DIPHENHYDRAMINE [Concomitant]
     Indication: PREMEDICATION
     Dosage: ROUTE:IVP
     Route: 042

REACTIONS (1)
  - HYPERSENSITIVITY [None]
